FAERS Safety Report 10300053 (Version 2)
Quarter: 2014Q4

REPORT INFORMATION
  Report Type: Spontaneous
  Country: US (occurrence: US)
  Receive Date: 20140711
  Receipt Date: 20141003
  Transmission Date: 20150528
  Serious: Yes (Other)
  Sender: FDA-Public Use
  Company Number: US-GLAXOSMITHKLINE-A1080597A

PATIENT
  Age: 57 Year
  Sex: Male

DRUGS (1)
  1. LAMICTAL [Suspect]
     Active Substance: LAMOTRIGINE
     Indication: SEIZURE
     Dosage: 150MG UNKNOWN
     Route: 065

REACTIONS (2)
  - Cognitive disorder [Unknown]
  - Brain operation [Unknown]

NARRATIVE: CASE EVENT DATE: 2010
